FAERS Safety Report 15025139 (Version 4)
Quarter: 2018Q4

REPORT INFORMATION
  Report Type: Report from Study
  Country: CZ (occurrence: CZ)
  Receive Date: 20180618
  Receipt Date: 20181024
  Transmission Date: 20190204
  Serious: Yes (Death, Life-Threatening, Hospitalization)
  Sender: FDA-Public Use
  Company Number: CZ-EISAI MEDICAL RESEARCH-EC-2018-040595

PATIENT
  Age: 77 Year
  Sex: Male
  Weight: 70 kg

DRUGS (13)
  1. EVEROLIMUS. [Suspect]
     Active Substance: EVEROLIMUS
     Indication: RENAL CELL CARCINOMA
     Route: 048
     Dates: start: 20180514, end: 20180529
  2. LENVATINIB [Suspect]
     Active Substance: LENVATINIB
     Indication: RENAL CELL CARCINOMA
     Route: 048
     Dates: start: 20180514, end: 20180529
  3. OXYGENOTHERAPY [Concomitant]
  4. METFOGAMMA [Concomitant]
     Active Substance: METFORMIN HYDROCHLORIDE
  5. CLEXANE [Concomitant]
     Active Substance: ENOXAPARIN SODIUM
  6. AUGMENTIN [Concomitant]
     Active Substance: AMOXICILLIN\CLAVULANATE POTASSIUM
  7. NOVOMIX 30 [Concomitant]
     Active Substance: INSULIN ASPART
  8. EUTHYROX [Concomitant]
     Active Substance: LEVOTHYROXINE SODIUM
  9. LOKREN [Concomitant]
     Active Substance: BETAXOLOL HYDROCHLORIDE
  10. HELICID [Concomitant]
     Active Substance: OMEPRAZOLE
  11. INDAPAMID [Concomitant]
     Active Substance: INDAPAMIDE
  12. MILURIT [Concomitant]
     Active Substance: ALLOPURINOL
  13. DIBETIX [Concomitant]

REACTIONS (2)
  - Sepsis [Fatal]
  - Pneumonitis [Fatal]

NARRATIVE: CASE EVENT DATE: 20180529
